FAERS Safety Report 6937550-X (Version None)
Quarter: 2010Q3

REPORT INFORMATION
  Report Type: 
  Country: None (occurrence: None)
  Receive Date: 20100823
  Receipt Date: 20100823
  Transmission Date: 20110219
  Serious: Yes (Other)
  Sender: FDA-Public Use
  Company Number: None

PATIENT
  Age: 17 Year
  Sex: Male
  Weight: 72.5755 kg

DRUGS (1)
  1. SINGULAIR [Suspect]
     Indication: SEASONAL ALLERGY
     Dosage: 30-10MG TABLETS 1 TABLET DAILY PO
     Route: 048
     Dates: start: 20100408, end: 20100818

REACTIONS (9)
  - ANGER [None]
  - COGNITIVE DISORDER [None]
  - COUGH [None]
  - DISTURBANCE IN ATTENTION [None]
  - FEELING ABNORMAL [None]
  - MEMORY IMPAIRMENT [None]
  - PERSONALITY CHANGE [None]
  - SOCIAL PROBLEM [None]
  - THINKING ABNORMAL [None]
